FAERS Safety Report 5014526-3 (Version None)
Quarter: 2006Q2

REPORT INFORMATION
  Report Type: 
  Country: None (occurrence: None)
  Receive Date: 20060531
  Receipt Date: 20060522
  Transmission Date: 20061013
  Serious: Yes (Life-Threatening, Hospitalization)
  Sender: FDA-Public Use
  Company Number: DE-AVENTIS-200611513DE

PATIENT
  Sex: Female

DRUGS (2)
  1. TAXOTERE [Suspect]
     Indication: OVARIAN CANCER
     Dates: start: 20060501, end: 20060501
  2. PLATINUM COMPOUNDS NOS [Suspect]
     Indication: OVARIAN CANCER
     Dates: start: 20060501, end: 20060501

REACTIONS (5)
  - BLOOD CREATINE PHOSPHOKINASE INCREASED [None]
  - CARDIOMYOPATHY [None]
  - EJECTION FRACTION DECREASED [None]
  - GENERALISED OEDEMA [None]
  - MYOSITIS [None]
